FAERS Safety Report 4641612-X (Version None)
Quarter: 2005Q2

REPORT INFORMATION
  Report Type: 
  Country: None (occurrence: None)
  Receive Date: 20050421
  Receipt Date: 20050406
  Transmission Date: 20051028
  Serious: Yes (Hospitalization)
  Sender: FDA-Public Use
  Company Number: DE-ABBOTT-05P-062-0296869-00

PATIENT
  Sex: Female
  Weight: 73 kg

DRUGS (4)
  1. SEVORANE LIQUID FOR INHALATION [Suspect]
     Indication: ANAESTHESIA
     Dosage: 1.9% UP TO 2%
     Route: 055
     Dates: start: 20050322, end: 20050322
  2. SEVORANE LIQUID FOR INHALATION [Suspect]
     Indication: OOPHORECTOMY
  3. PERFALGAN [Concomitant]
     Indication: ANAESTHESIA
     Route: 042
     Dates: start: 20050322, end: 20050322
  4. PROPOFOL [Concomitant]
     Indication: ANAESTHESIA
     Route: 042
     Dates: start: 20050322, end: 20050322

REACTIONS (5)
  - ANAESTHETIC COMPLICATION [None]
  - ASPARTATE AMINOTRANSFERASE INCREASED [None]
  - BLOOD LACTATE DEHYDROGENASE INCREASED [None]
  - GAMMA-GLUTAMYLTRANSFERASE INCREASED [None]
  - PROTHROMBIN TIME PROLONGED [None]
